FAERS Safety Report 18534417 (Version 1)
Quarter: 2020Q4

REPORT INFORMATION
  Report Type: Spontaneous
  Country: IT (occurrence: IT)
  Receive Date: 20201123
  Receipt Date: 20201123
  Transmission Date: 20210114
  Serious: Yes (Other)
  Sender: FDA-Public Use
  Company Number: NVSC2020IT300852

PATIENT
  Age: 53 Year
  Sex: Male
  Weight: 92 kg

DRUGS (1)
  1. COSENTYX [Suspect]
     Active Substance: SECUKINUMAB
     Indication: PSORIASIS
     Dosage: 300MG
     Route: 058
     Dates: start: 20161005, end: 20200821

REACTIONS (3)
  - Skin exfoliation [Unknown]
  - Loss of therapeutic response [Unknown]
  - Psoriasis [Unknown]

NARRATIVE: CASE EVENT DATE: 20200910
